FAERS Safety Report 15565849 (Version 1)
Quarter: 2018Q4

REPORT INFORMATION
  Report Type: Spontaneous
  Country: US (occurrence: US)
  Receive Date: 20181030
  Receipt Date: 20181030
  Transmission Date: 20190205
  Serious: No
  Sender: FDA-Public Use
  Company Number: None

PATIENT
  Age: 31 Year
  Sex: Female

DRUGS (1)
  1. OXYCODONE AND ACETAMINOPHEN [Suspect]
     Active Substance: ACETAMINOPHEN\OXYCODONE HYDROCHLORIDE

REACTIONS (6)
  - Peripheral swelling [None]
  - Feeling abnormal [None]
  - Pyrexia [None]
  - Chills [None]
  - Swelling face [None]
  - Rash generalised [None]

NARRATIVE: CASE EVENT DATE: 20180930
